FAERS Safety Report 4877742-7 (Version None)
Quarter: 2006Q1

REPORT INFORMATION
  Report Type: 
  Country: None (occurrence: None)
  Receive Date: 20060111
  Receipt Date: 20051005
  Transmission Date: 20060701
  Serious: Yes (Hospitalization, Disabling)
  Sender: FDA-Public Use
  Company Number: US-MERCK-0510USA04613

PATIENT
  Age: 39 Year
  Sex: Female
  Weight: 75 kg

DRUGS (6)
  1. VIOXX [Suspect]
     Indication: BACK PAIN
     Route: 048
     Dates: start: 20011001, end: 20021019
  2. VIOXX [Suspect]
     Route: 048
     Dates: start: 20021019
  3. VIOXX [Suspect]
     Route: 048
     Dates: start: 20030723
  4. SYNTHROID [Concomitant]
     Route: 065
  5. [THERAPY UNSPECIFIED] [Concomitant]
     Route: 065
  6. HORMONAL CONTRACEPTIVES (UNSPECIFIED) [Concomitant]
     Route: 065

REACTIONS (7)
  - ATRIOVENTRICULAR BLOCK COMPLETE [None]
  - DEPRESSION [None]
  - FALL [None]
  - INJURY [None]
  - SYNCOPE [None]
  - SYNCOPE VASOVAGAL [None]
  - TRANSIENT ISCHAEMIC ATTACK [None]
